FAERS Safety Report 5765620-0 (Version None)
Quarter: 2008Q2

REPORT INFORMATION
  Report Type: 
  Country: None (occurrence: None)
  Receive Date: 20080611
  Receipt Date: 20080605
  Transmission Date: 20081010
  Serious: Yes (Death, Other)
  Sender: FDA-Public Use
  Company Number: US-ASTRAZENECA-2006UW21579

PATIENT
  Age: 895 Month
  Sex: Female

DRUGS (2)
  1. SEROQUEL [Suspect]
     Indication: SCHIZOPHRENIA
     Route: 048
     Dates: start: 20031201, end: 20050128
  2. SEROQUEL [Suspect]
     Indication: DEPRESSION
     Route: 048
     Dates: start: 20031201, end: 20050128

REACTIONS (9)
  - ASTHENIA [None]
  - BLOOD CHOLESTEROL INCREASED [None]
  - BLOOD PRESSURE [None]
  - DEATH [None]
  - DELIRIUM [None]
  - DIABETES MELLITUS [None]
  - DIABETIC COMA [None]
  - GAIT DISTURBANCE [None]
  - HYPERPROLACTINAEMIA [None]
